FAERS Safety Report 8436599-8 (Version None)
Quarter: 2012Q2

REPORT INFORMATION
  Report Type: 
  Country: None (occurrence: None)
  Receive Date: 20120614
  Receipt Date: 20120604
  Transmission Date: 20120825
  Serious: Yes (Other)
  Sender: FDA-Public Use
  Company Number: US-EISAI INC-E3810-05613-SOL-US

PATIENT
  Sex: Female

DRUGS (2)
  1. ACIPHEX [Suspect]
     Route: 048
  2. TOPAMAX [Concomitant]

REACTIONS (2)
  - HAEMORRHAGE [None]
  - DRY MOUTH [None]
